FAERS Safety Report 7047753-4 (Version None)
Quarter: 2010Q4

REPORT INFORMATION
  Report Type: 
  Country: None (occurrence: None)
  Receive Date: 20101015
  Receipt Date: 20101006
  Transmission Date: 20110411
  Serious: Yes (Hospitalization)
  Sender: FDA-Public Use
  Company Number: AU-PFIZER INC-2010126403

PATIENT
  Age: 72 Year
  Sex: Female

DRUGS (2)
  1. ZOLOFT [Suspect]
     Indication: DEMENTIA ALZHEIMER'S TYPE
     Dosage: 100 MG, 1X/DAY
     Route: 048
     Dates: start: 20030101
  2. ARICEPT [Suspect]
     Indication: DEMENTIA ALZHEIMER'S TYPE
     Dosage: 10 MG, 1X/DAY
     Route: 048
     Dates: start: 20041201

REACTIONS (1)
  - HYSTEROSCOPY [None]
